FAERS Safety Report 6222029-3 (Version None)
Quarter: 2009Q2

REPORT INFORMATION
  Report Type: 
  Country: None (occurrence: None)
  Receive Date: 20090611
  Receipt Date: 20090605
  Transmission Date: 20091009
  Serious: Yes (Other)
  Sender: FDA-Public Use
  Company Number: US-JNJFOC-20090602479

PATIENT
  Sex: Female

DRUGS (4)
  1. MONISTAT 3 UNSPECIFIED [Suspect]
     Route: 067
  2. MONISTAT 3 UNSPECIFIED [Suspect]
     Indication: FUNGAL INFECTION
     Route: 067
  3. MONISTAT 3 UNSPECIFIED [Suspect]
     Route: 061
  4. MONISTAT 3 UNSPECIFIED [Suspect]
     Route: 061

REACTIONS (3)
  - ABDOMINAL DISTENSION [None]
  - DYSURIA [None]
  - SENSORY DISTURBANCE [None]
